FAERS Safety Report 7349379-1 (Version None)
Quarter: 2011Q1

REPORT INFORMATION
  Report Type: 
  Country: None (occurrence: None)
  Receive Date: 20110314
  Receipt Date: 20100909
  Transmission Date: 20110831
  Serious: No
  Sender: FDA-Public Use
  Company Number: A0880687A

PATIENT
  Age: 27 Year
  Sex: Female

DRUGS (2)
  1. AMOXICILLIN [Suspect]
     Dosage: 500MG UNKNOWN
     Route: 065
     Dates: start: 20100801
  2. NUVARING [Suspect]
     Indication: CONTRACEPTION
     Route: 067

REACTIONS (3)
  - ASTHENIA [None]
  - METRORRHAGIA [None]
  - DRUG INTERACTION [None]
